FAERS Safety Report 5370332-1 (Version None)
Quarter: 2007Q2

REPORT INFORMATION
  Report Type: 
  Country: None (occurrence: None)
  Receive Date: 20070626
  Receipt Date: 20061109
  Transmission Date: 20071010
  Serious: No
  Sender: FDA-Public Use
  Company Number: US-AMGEN-US199832

PATIENT
  Sex: Male
  Weight: 75.8 kg

DRUGS (5)
  1. ARANESP [Suspect]
     Indication: ANAEMIA OF MALIGNANT DISEASE
     Route: 042
     Dates: start: 20051003
  2. VELCADE [Concomitant]
     Route: 065
     Dates: start: 20061023, end: 20061102
  3. ANZEMET [Concomitant]
     Route: 065
     Dates: start: 20061023, end: 20061102
  4. COUMADIN [Concomitant]
     Route: 065
  5. PERCOCET [Concomitant]
     Route: 065

REACTIONS (11)
  - BACK PAIN [None]
  - CHEST PAIN [None]
  - CONSTIPATION [None]
  - DERMATITIS [None]
  - HEADACHE [None]
  - HYPERSENSITIVITY [None]
  - PROTEIN TOTAL INCREASED [None]
  - PRURITUS [None]
  - RASH [None]
  - RESPIRATORY TRACT INFECTION [None]
  - URTICARIA [None]
